FAERS Safety Report 19638125 (Version 1)
Quarter: 2021Q3

REPORT INFORMATION
  Report Type: Report from Study
  Country: AR (occurrence: AR)
  Receive Date: 20210730
  Receipt Date: 20210730
  Transmission Date: 20211014
  Serious: Yes (Death, Hospitalization)
  Sender: FDA-Public Use
  Company Number: AR-SA-2021SA250545

PATIENT
  Age: 77 Year
  Sex: Male
  Weight: 82 kg

DRUGS (2)
  1. SEVELAMER CARBONATE. [Suspect]
     Active Substance: SEVELAMER CARBONATE
     Indication: HYPERPHOSPHATAEMIA
     Dosage: 3 SACHETS/DAY
     Route: 048
     Dates: end: 20210712
  2. SEVELAMER CARBONATE. [Suspect]
     Active Substance: SEVELAMER CARBONATE
     Indication: CHRONIC KIDNEY DISEASE

REACTIONS (1)
  - COVID-19 [Fatal]
